FAERS Safety Report 25015019 (Version 1)
Quarter: 2025Q1

REPORT INFORMATION
  Report Type: Spontaneous
  Country: US (occurrence: US)
  Receive Date: 20250226
  Receipt Date: 20250226
  Transmission Date: 20250408
  Serious: Yes (Hospitalization)
  Sender: NOVARTIS
  Company Number: US-SANDOZ-SDZ2025US011530

PATIENT
  Sex: Male

DRUGS (10)
  1. VANCOMYCIN [Suspect]
     Active Substance: VANCOMYCIN
     Indication: Cystic fibrosis
     Dosage: 1000 MG, QD (500 MG, BID)
     Route: 055
     Dates: start: 20190920
  2. VANCOMYCIN [Suspect]
     Active Substance: VANCOMYCIN
     Indication: Cystic fibrosis lung
  3. TOBRAMYCIN [Suspect]
     Active Substance: TOBRAMYCIN
     Indication: Cystic fibrosis lung
     Dosage: 600 MG, QD (300 MG, BID)
     Route: 055
     Dates: start: 20190920
  4. TOBRAMYCIN [Suspect]
     Active Substance: TOBRAMYCIN
     Indication: Cystic fibrosis
  5. AZTREONAM LYSINE [Suspect]
     Active Substance: AZTREONAM LYSINE
     Indication: Cystic fibrosis
     Dosage: 225 MG, QD (75 MG, TID)
     Route: 055
     Dates: start: 20221005
  6. AZTREONAM LYSINE [Suspect]
     Active Substance: AZTREONAM LYSINE
     Indication: Cystic fibrosis lung
  7. PULMOZYME [Suspect]
     Active Substance: DORNASE ALFA
     Indication: Cystic fibrosis lung
     Dosage: 1 MG, QD
     Route: 055
     Dates: start: 20190724
  8. PULMOZYME [Suspect]
     Active Substance: DORNASE ALFA
     Indication: Cystic fibrosis
  9. COLISTIMETHATE SODIUM [Suspect]
     Active Substance: COLISTIMETHATE SODIUM
     Indication: Cystic fibrosis lung
     Dosage: 450 MG, QD (150 MG, TID)
     Route: 055
     Dates: start: 20190920
  10. COLISTIMETHATE SODIUM [Suspect]
     Active Substance: COLISTIMETHATE SODIUM
     Indication: Cystic fibrosis

REACTIONS (2)
  - COVID-19 [Unknown]
  - Influenza [Unknown]
